FAERS Safety Report 8311126 (Version 2)
Quarter: 2012Q4

REPORT INFORMATION
  Report Type: 
  Country: CA (occurrence: CA)
  Receive Date: 20111227
  Receipt Date: 20120831
  Transmission Date: 20130627
  Serious: Yes (Other)
  Sender: FDA-Public Use
  Company Number: CA-JNJFOC-20111207949

PATIENT
  Age: 46 None
  Sex: Female
  Weight: 122.47 kg

DRUGS (5)
  1. REMICADE [Suspect]
     Indication: CROHN^S DISEASE
     Route: 042
  2. REMICADE [Suspect]
     Indication: CROHN^S DISEASE
     Route: 042
  3. REMICADE [Suspect]
     Indication: CROHN^S DISEASE
     Route: 042
     Dates: start: 20110926
  4. REMICADE [Suspect]
     Indication: CROHN^S DISEASE
     Route: 042
     Dates: start: 201112
  5. PENTASA [Concomitant]
     Route: 065

REACTIONS (7)
  - Dyspnoea [Unknown]
  - Arthralgia [Unknown]
  - Fluid retention [Unknown]
  - Influenza like illness [Recovered/Resolved]
  - Weight increased [Not Recovered/Not Resolved]
  - Oedema peripheral [Recovering/Resolving]
  - Rash [Recovered/Resolved]
